FAERS Safety Report 8312380-5 (Version None)
Quarter: 2012Q2

REPORT INFORMATION
  Report Type: 
  Country: None (occurrence: None)
  Receive Date: 20120425
  Receipt Date: 20120423
  Transmission Date: 20120825
  Serious: Yes (Death, Other)
  Sender: FDA-Public Use
  Company Number: US-AMGEN-QUU438182

PATIENT
  Age: 58 Year
  Sex: Male
  Weight: 49.433 kg

DRUGS (7)
  1. NPLATE [Suspect]
     Indication: IDIOPATHIC THROMBOCYTOPENIC PURPURA
     Dosage: 100 MUG, UNK
     Route: 058
     Dates: start: 20081216, end: 20090827
  2. ISENTRESS [Concomitant]
     Indication: HIV INFECTION
     Dosage: 400 MG, QD
     Route: 048
     Dates: start: 20090216, end: 20090831
  3. NORVIR [Concomitant]
     Indication: HIV INFECTION
     Dosage: 100 MG, QD
     Route: 048
     Dates: start: 20090218, end: 20090831
  4. DOXYCYCLINE [Suspect]
     Indication: PRODUCT USED FOR UNKNOWN INDICATION
  5. EMTRIVA [Concomitant]
     Indication: DIALYSIS
     Dosage: 200 MG, 2 TIMES/WK
     Route: 048
     Dates: start: 20071120, end: 20090831
  6. RETROVIR [Concomitant]
     Indication: HIV INFECTION
     Dosage: 300 MG, BID
     Route: 048
     Dates: start: 20090218, end: 20090831
  7. REYATAZ [Concomitant]
     Indication: HIV INFECTION
     Dosage: 150 MG, BID
     Route: 048
     Dates: start: 20090218, end: 20090831

REACTIONS (3)
  - NON-HODGKIN'S LYMPHOMA [None]
  - IDIOPATHIC THROMBOCYTOPENIC PURPURA [None]
  - HIV INFECTION [None]
